FAERS Safety Report 6264064-5 (Version None)
Quarter: 2009Q3

REPORT INFORMATION
  Report Type: 
  Country: None (occurrence: None)
  Receive Date: 20090710
  Receipt Date: 20090710
  Transmission Date: 20100115
  Serious: Yes (Death, Other)
  Sender: FDA-Public Use
  Company Number: JP-PFIZER INC-2009230828

PATIENT
  Age: 10 Month

DRUGS (5)
  1. METHYLPREDNISOLONE AND METHYLPREDNISOLONE ACETATE AND METHYLPREDNISOLO [Suspect]
     Dosage: PULSE THERAPY
  2. PREDNISOLONE AND PREDNISOLONE STEAGLATE [Suspect]
  3. VINCRISTINE [Suspect]
  4. ACTINOMYCIN D [Suspect]
  5. CYCLOPHOSPHAMIDE [Suspect]

REACTIONS (3)
  - HAEMORRHAGE INTRACRANIAL [None]
  - PNEUMOCYSTIS JIROVECI PNEUMONIA [None]
  - RESPIRATORY FAILURE [None]
